FAERS Safety Report 7212689-2 (Version None)
Quarter: 2011Q1

REPORT INFORMATION
  Report Type: 
  Country: None (occurrence: None)
  Receive Date: 20110106
  Receipt Date: 20110105
  Transmission Date: 20110831
  Serious: No
  Sender: FDA-Public Use
  Company Number: US-JNJFOC-20110100964

PATIENT
  Sex: Female
  Weight: 58.97 kg

DRUGS (4)
  1. FIORINAL W/CODEINE [Concomitant]
     Indication: MIGRAINE
     Dosage: UP TO 8 PER DAY
     Route: 048
  2. METHADONE [Concomitant]
     Indication: BACK PAIN
     Dosage: 10MG/UP TO 12 DAILY
     Route: 048
  3. DURAGESIC-50 [Suspect]
     Indication: BACK PAIN
     Route: 062
  4. SYNTHROID [Concomitant]
     Indication: THYROID DISORDER
     Dosage: 10MG/UP TO 12 DAILY
     Route: 048

REACTIONS (4)
  - DERMATILLOMANIA [None]
  - APPLICATION SITE EROSION [None]
  - PRODUCT QUALITY ISSUE [None]
  - EXPIRED DRUG ADMINISTERED [None]
